FAERS Safety Report 14735565 (Version 1)
Quarter: 2018Q2

REPORT INFORMATION
  Report Type: Report from Study
  Country: BR (occurrence: BR)
  Receive Date: 20180409
  Receipt Date: 20180409
  Transmission Date: 20180711
  Serious: Yes (Other)
  Sender: FDA-Public Use
  Company Number: BR-JNJFOC-20180408157

PATIENT
  Sex: Female
  Weight: 52 kg

DRUGS (1)
  1. SIMPONI [Suspect]
     Active Substance: GOLIMUMAB
     Indication: RHEUMATOID ARTHRITIS
     Route: 058
     Dates: start: 20170619, end: 20171019

REACTIONS (5)
  - Cataract [Unknown]
  - Diabetes mellitus [Unknown]
  - Haematochezia [Unknown]
  - Anaemia [Unknown]
  - Pain [Unknown]
